FAERS Safety Report 9049850 (Version 4)
Quarter: 2013Q1

REPORT INFORMATION
  Report Type: Spontaneous
  Country: US (occurrence: US)
  Receive Date: 20130205
  Receipt Date: 20130227
  Transmission Date: 20140127
  Serious: No
  Sender: FDA-Public Use
  Company Number: US-009507513-1301USA014216

PATIENT
  Sex: Female
  Weight: 97.52 kg

DRUGS (1)
  1. IMPLANON [Suspect]
     Dosage: UNK
     Dates: start: 20110215

REACTIONS (2)
  - Device breakage [Unknown]
  - No adverse event [Unknown]
